FAERS Safety Report 12928116 (Version 2)
Quarter: 2016Q4

REPORT INFORMATION
  Report Type: Spontaneous
  Country: IT (occurrence: IT)
  Receive Date: 20161110
  Receipt Date: 20161111
  Transmission Date: 20170207
  Serious: Yes (Other)
  Sender: FDA-Public Use
  Company Number: IT-ROCHE-1602212

PATIENT
  Age: 81 Year
  Sex: Male
  Weight: 85 kg

DRUGS (3)
  1. AVASTIN [Suspect]
     Active Substance: BEVACIZUMAB
     Indication: RENAL CANCER
     Dosage: 1 X 400 MG VIAL?LAST DOSE PRIOR TO THROMBOCYTOPENIA: 07/MAY/2015
     Route: 042
     Dates: start: 20141029
  2. AVASTIN [Suspect]
     Active Substance: BEVACIZUMAB
     Route: 042
     Dates: start: 20150604
  3. AVASTIN [Suspect]
     Active Substance: BEVACIZUMAB
     Dosage: 1 X 400 MG VIAL?LAST DOSE PRIOR TO SAE (NEPHROTIC SYNDROME AND RENAL FAILURE): 16/FEB/2016
     Route: 041

REACTIONS (3)
  - Renal failure [Unknown]
  - Nephrotic syndrome [Unknown]
  - Thrombocytopenia [Recovered/Resolved]

NARRATIVE: CASE EVENT DATE: 20150523
